FAERS Safety Report 15840739 (Version 1)
Quarter: 2019Q1

REPORT INFORMATION
  Report Type: Report from Study
  Country: IT (occurrence: IT)
  Receive Date: 20190118
  Receipt Date: 20190118
  Transmission Date: 20190417
  Serious: Yes (Hospitalization)
  Sender: FDA-Public Use
  Company Number: IT-TEVA-2019-IT-100057

PATIENT
  Age: 90 Year
  Sex: Female

DRUGS (9)
  1. METFORMIN [Concomitant]
     Active Substance: METFORMIN HYDROCHLORIDE
  2. FUROSEMIDE. [Concomitant]
     Active Substance: FUROSEMIDE
  3. GLICLAZIDE [Concomitant]
     Active Substance: GLICLAZIDE
  4. PANTORC 40 MG COMPRESSE GASTRORESISTENTI [Concomitant]
  5. KCL-RETARD 600 MG COMPRESSE A RILASCIO PROLUNGATO [Concomitant]
  6. ALENDRONIC ACID [Suspect]
     Active Substance: ALENDRONIC ACID
     Indication: OSTEOPOROSIS
     Route: 048
     Dates: start: 20140101
  7. CARDIRENE 100 MG [Concomitant]
  8. BISOPROLOL HEMIFUMARATE [Concomitant]
     Active Substance: BISOPROLOL FUMARATE
  9. DELORAZEPAM [Concomitant]
     Active Substance: DELORAZEPAM

REACTIONS (2)
  - Cardiac failure [Recovering/Resolving]
  - Atrial fibrillation [Recovering/Resolving]

NARRATIVE: CASE EVENT DATE: 20180718
